FAERS Safety Report 7425968-0 (Version None)
Quarter: 2011Q2

REPORT INFORMATION
  Report Type: 
  Country: None (occurrence: None)
  Receive Date: 20110420
  Receipt Date: 20110415
  Transmission Date: 20111010
  Serious: No
  Sender: FDA-Public Use
  Company Number: US-TEVA-276866USA

PATIENT
  Age: 75 Year
  Sex: Female
  Weight: 56.2 kg

DRUGS (4)
  1. PREDNISONE [Concomitant]
  2. ALBUTEROL SULFATE AUTOHALER [Suspect]
     Indication: SINUSITIS
     Route: 055
  3. ALBUTEROL SULFATE AUTOHALER [Suspect]
     Indication: BRONCHITIS
  4. AZITHROMYCIN [Concomitant]

REACTIONS (2)
  - DYSPNOEA [None]
  - DRUG INEFFECTIVE [None]
